FAERS Safety Report 5335528-3 (Version None)
Quarter: 2007Q2

REPORT INFORMATION
  Report Type: 
  Country: None (occurrence: None)
  Receive Date: 20070525
  Receipt Date: 20070514
  Transmission Date: 20071010
  Serious: Yes (Other)
  Sender: FDA-Public Use
  Company Number: US-PFIZER INC-2007040741

PATIENT
  Sex: Female
  Weight: 74 kg

DRUGS (5)
  1. CHANTIX [Suspect]
     Indication: EX-SMOKER
     Route: 048
     Dates: start: 20070414, end: 20070101
  2. ISOSORBIDE [Concomitant]
  3. ATENOLOL [Concomitant]
  4. XANAX [Concomitant]
  5. CARDIZEM [Concomitant]

REACTIONS (2)
  - GAIT DISTURBANCE [None]
  - VERTIGO [None]
